FAERS Safety Report 13019835 (Version 1)
Quarter: 2016Q4

REPORT INFORMATION
  Report Type: Spontaneous
  Country: US (occurrence: US)
  Receive Date: 20161212
  Receipt Date: 20161212
  Transmission Date: 20170207
  Serious: No
  Sender: FDA-Public Use
  Company Number: US-ROCHE-1803357

PATIENT
  Age: 60 Year
  Sex: Male

DRUGS (2)
  1. ACTEMRA [Suspect]
     Active Substance: TOCILIZUMAB
     Indication: RHEUMATOID ARTHRITIS
     Route: 042
     Dates: start: 201605, end: 201606
  2. MEDROL [Concomitant]
     Active Substance: METHYLPREDNISOLONE
     Dosage: INDICATION: INFLAMMATORY DISEASE
     Route: 065
     Dates: end: 201606

REACTIONS (1)
  - Diarrhoea haemorrhagic [Recovered/Resolved]
